FAERS Safety Report 18637057 (Version 1)
Quarter: 2020Q4

REPORT INFORMATION
  Report Type: Spontaneous
  Country: US (occurrence: US)
  Receive Date: 20201219
  Receipt Date: 20201219
  Transmission Date: 20210114
  Serious: No
  Sender: FDA-Public Use
  Company Number: NVSC2020US337193

PATIENT
  Sex: Female

DRUGS (2)
  1. HYALURONIC ACID [Concomitant]
     Active Substance: HYALURONIC ACID
     Indication: ARTHRITIS
     Dosage: UNK
     Route: 065
  2. VOLTAREN [Suspect]
     Active Substance: DICLOFENAC SODIUM
     Indication: ARTHRITIS
     Dosage: UNK
     Route: 065
     Dates: start: 202010, end: 202011

REACTIONS (2)
  - Erythema [Recovering/Resolving]
  - Rash [Recovering/Resolving]
